FAERS Safety Report 6139631-X (Version None)
Quarter: 2009Q2

REPORT INFORMATION
  Report Type: 
  Country: None (occurrence: None)
  Receive Date: 20090401
  Receipt Date: 20090326
  Transmission Date: 20091009
  Serious: Yes (Hospitalization)
  Sender: FDA-Public Use
  Company Number: US-ABBOTT-09P-163-0564991-00

PATIENT
  Sex: Male
  Weight: 110.32 kg

DRUGS (21)
  1. ZEMPLAR [Suspect]
     Indication: RENAL FAILURE CHRONIC
     Route: 048
     Dates: start: 20080101
  2. ZEMPLAR [Suspect]
     Indication: HYPERPARATHYROIDISM SECONDARY
  3. ZEMPLAR [Suspect]
     Indication: BLOOD CREATININE ABNORMAL
  4. HUMULIN N [Concomitant]
     Indication: DIABETES MELLITUS
     Dosage: AC
     Route: 058
  5. HUMALOG [Concomitant]
     Indication: DIABETES MELLITUS
     Dosage: SLIDING SCALE
     Route: 058
  6. ASPIRIN [Concomitant]
     Indication: CARDIAC PACEMAKER INSERTION
     Route: 048
  7. ASPIRIN [Concomitant]
     Indication: CARDIAC FAILURE CONGESTIVE
  8. FUROSEMIDE [Concomitant]
     Indication: DIURETIC THERAPY
     Route: 048
  9. NEXIUM [Concomitant]
     Indication: GASTROOESOPHAGEAL REFLUX DISEASE
     Route: 048
  10. CO-QUE 10 [Concomitant]
     Indication: VITAMIN SUPPLEMENTATION
     Route: 048
  11. LYRICA [Concomitant]
     Indication: DIABETIC NEUROPATHY
     Route: 048
  12. COUMADIN [Concomitant]
     Indication: ANTICOAGULANT THERAPY
     Route: 048
  13. COUMADIN [Concomitant]
     Indication: CARDIAC PACEMAKER INSERTION
  14. VITAMIN B COMPLEX CAP [Concomitant]
     Indication: VITAMIN SUPPLEMENTATION
     Route: 048
  15. PROSCAR [Concomitant]
     Indication: PROSTATOMEGALY
     Route: 048
  16. FERROUS SULFATE TAB [Concomitant]
     Indication: ANAEMIA
     Route: 048
  17. HYOMAX [Concomitant]
     Indication: ERUCTATION
     Route: 060
  18. NITROSTAT [Concomitant]
     Indication: ANGINA PECTORIS
     Route: 060
  19. TRICOR [Concomitant]
     Indication: BLOOD CHOLESTEROL
     Route: 048
  20. GLUCOSAMINE [Concomitant]
     Indication: ARTHRALGIA
     Route: 048
  21. VITAMIN D [Concomitant]
     Indication: RENAL DISORDER
     Route: 048

REACTIONS (2)
  - BLOOD GLUCOSE DECREASED [None]
  - BLOOD PRESSURE DECREASED [None]
